FAERS Safety Report 12445083 (Version 1)
Quarter: 2016Q2

REPORT INFORMATION
  Report Type: Spontaneous
  Country: US (occurrence: US)
  Receive Date: 20160607
  Receipt Date: 20160607
  Transmission Date: 20160815
  Serious: Yes (Other)
  Sender: FDA-Public Use
  Company Number: US-VALIDUS PHARMACEUTICALS LLC-US-2016VAL001785

PATIENT
  Age: 16 Year
  Sex: Male

DRUGS (4)
  1. FLECAINIDE [Suspect]
     Active Substance: FLECAINIDE
     Indication: VENTRICULAR TACHYCARDIA
     Dosage: UNK
  2. AMIODARONE [Suspect]
     Active Substance: AMIODARONE
     Indication: VENTRICULAR TACHYCARDIA
     Dosage: UNK
  3. METOPROLOL TARTRATE. [Suspect]
     Active Substance: METOPROLOL TARTRATE
     Indication: VENTRICULAR TACHYCARDIA
     Dosage: UNK
  4. SOTALOL. [Suspect]
     Active Substance: SOTALOL
     Indication: VENTRICULAR TACHYCARDIA
     Dosage: UNK

REACTIONS (1)
  - Ventricular tachycardia [Recovered/Resolved]
